FAERS Safety Report 25680797 (Version 1)
Quarter: 2025Q3

REPORT INFORMATION
  Report Type: Spontaneous
  Country: US (occurrence: None)
  Receive Date: 20250813
  Receipt Date: 20250813
  Transmission Date: 20251020
  Serious: Yes (Congenital Anomaly, Other)
  Sender: FDA-CTU
  Company Number: None

PATIENT
  Sex: Female
  Weight: 2.86 kg

DRUGS (5)
  1. ARIPIPRAZOLE [Suspect]
     Active Substance: ARIPIPRAZOLE
     Indication: Bipolar disorder
  2. DESVENLAFAXINE [Suspect]
     Active Substance: DESVENLAFAXINE
     Dates: start: 20220708
  3. TRAZODONE [Suspect]
     Active Substance: TRAZODONE HYDROCHLORIDE
     Dates: start: 20220708
  4. HYDROXYZINE PAMOATE [Suspect]
     Active Substance: HYDROXYZINE PAMOATE
     Dates: start: 20230217
  5. CLONAZEPAM [Suspect]
     Active Substance: CLONAZEPAM
     Dates: start: 20230217

REACTIONS (6)
  - Maternal drugs affecting foetus [None]
  - Fallot^s tetralogy [None]
  - Neonatal hypoxia [None]
  - Cyanosis neonatal [None]
  - Respiratory failure [None]
  - Circulatory collapse [None]

NARRATIVE: CASE EVENT DATE: 20221209
